FAERS Safety Report 6590001-X (Version None)
Quarter: 2010Q1

REPORT INFORMATION
  Report Type: 
  Country: None (occurrence: None)
  Receive Date: 20100219
  Receipt Date: 20100209
  Transmission Date: 20100710
  Serious: Yes (Hospitalization, Other)
  Sender: FDA-Public Use
  Company Number: PHHY2009MX59294

PATIENT
  Age: 75 Year
  Sex: Female

DRUGS (4)
  1. EXFORGE [Suspect]
     Indication: HYPERTENSION
     Dosage: 1 TABLET (160/5 MG) PER DAY
     Dates: start: 20091201, end: 20091201
  2. ISOSORBIDE [Concomitant]
  3. CAPTOPRIL [Concomitant]
  4. ENALAPRIL MALEATE [Concomitant]

REACTIONS (7)
  - CHEST DISCOMFORT [None]
  - CHEST PAIN [None]
  - HEADACHE [None]
  - HYPERTENSION [None]
  - HYPOTENSION [None]
  - LIVER DISORDER [None]
  - MYOCARDIAL INFARCTION [None]
